FAERS Safety Report 5237665-0 (Version None)
Quarter: 2007Q1

REPORT INFORMATION
  Report Type: 
  Country: None (occurrence: None)
  Receive Date: 20070214
  Receipt Date: 20070130
  Transmission Date: 20070707
  Serious: Yes (Hospitalization)
  Sender: FDA-Public Use
  Company Number: DE-AMGEN-UK208931

PATIENT
  Age: 62 Year
  Sex: Female

DRUGS (5)
  1. KINERET [Suspect]
     Indication: DRUG USE FOR UNKNOWN INDICATION
     Route: 065
     Dates: start: 20030201, end: 20030301
  2. ETANERCEPT [Concomitant]
     Dates: start: 20020601, end: 20030201
  3. ADALIMUMAB [Concomitant]
     Route: 065
     Dates: start: 20030301, end: 20040101
  4. METHOTREXATE [Concomitant]
     Route: 065
  5. LEFLUNOMIDE [Concomitant]
     Route: 065

REACTIONS (1)
  - PROSTHESIS IMPLANTATION [None]
